FAERS Safety Report 7674257-8 (Version None)
Quarter: 2011Q3

REPORT INFORMATION
  Report Type: 
  Country: None (occurrence: None)
  Receive Date: 20110810
  Receipt Date: 20110805
  Transmission Date: 20111222
  Serious: Yes (Hospitalization)
  Sender: FDA-Public Use
  Company Number: FR-PFIZER INC-2011179254

PATIENT
  Age: 87 Year
  Sex: Female

DRUGS (3)
  1. PANTOPRAZOLE SODIUM [Suspect]
     Dosage: UNK
     Route: 042
     Dates: start: 20110311, end: 20110316
  2. PIPERACILLIN AND TAZOBACTAM [Suspect]
     Dosage: 4 G, 3X/DAY
     Dates: start: 20110311, end: 20110316
  3. PIPERACILLIN AND TAZOBACTAM [Suspect]
     Dosage: 4 G, 2X/DAY

REACTIONS (2)
  - CONFUSIONAL STATE [None]
  - HALLUCINATION [None]
